FAERS Safety Report 6827032-8 (Version None)
Quarter: 2010Q3

REPORT INFORMATION
  Report Type: 
  Country: None (occurrence: None)
  Receive Date: 20100709
  Receipt Date: 20100630
  Transmission Date: 20110219
  Serious: Yes (Other)
  Sender: FDA-Public Use
  Company Number: FR-ABBOTT-10P-056-0628989-00

PATIENT
  Sex: Female
  Weight: 85 kg

DRUGS (6)
  1. HUMIRA [Suspect]
     Indication: ANKYLOSING SPONDYLITIS
     Route: 058
     Dates: start: 20080901, end: 20100301
  2. HUMIRA [Suspect]
     Indication: SPONDYLITIS
  3. ENBREL [Suspect]
     Indication: SPONDYLITIS
     Route: 058
     Dates: end: 20080830
  4. ENBREL [Suspect]
  5. METHOTREXATE [Suspect]
     Indication: ANKYLOSING SPONDYLITIS
     Route: 048
     Dates: start: 20071101
  6. METHOTREXATE [Suspect]
     Indication: SPONDYLITIS

REACTIONS (5)
  - BLOOD PRESSURE INCREASED [None]
  - CERVICAL DYSPLASIA [None]
  - DRUG INEFFECTIVE [None]
  - ENDOMETRIAL METAPLASIA [None]
  - UTERINE CERVICAL SQUAMOUS METAPLASIA [None]
